FAERS Safety Report 21650682 (Version 2)
Quarter: 2023Q1

REPORT INFORMATION
  Report Type: Report from Study
  Country: US (occurrence: US)
  Receive Date: 20221128
  Receipt Date: 20230316
  Transmission Date: 20230418
  Serious: No
  Sender: FDA-Public Use
  Company Number: US-ABBVIE-22K-163-4458823-00

PATIENT
  Sex: Female

DRUGS (6)
  1. HUMIRA [Suspect]
     Active Substance: ADALIMUMAB
     Indication: Psoriasis
     Dosage: CITRATE FREE?FORM STRENGTH- 40 MG
     Route: 058
  2. HUMIRA [Suspect]
     Active Substance: ADALIMUMAB
     Indication: Psoriasis
     Dosage: CITRATE FREE?FORM STRENGTH- 40 MG
     Route: 058
     Dates: start: 202204
  3. SODIUM FLUORIDE\STANNOUS FLUORIDE [Concomitant]
     Active Substance: SODIUM FLUORIDE\STANNOUS FLUORIDE
     Indication: Product used for unknown indication
  4. CALCIUM [Concomitant]
     Active Substance: CALCIUM
     Indication: Product used for unknown indication
  5. VITAMIN D3 [Concomitant]
     Active Substance: CHOLECALCIFEROL
     Indication: Product used for unknown indication
  6. FLONASE [Concomitant]
     Active Substance: FLUTICASONE PROPIONATE
     Indication: Product used for unknown indication

REACTIONS (5)
  - Maternal exposure during pregnancy [Unknown]
  - Unevaluable event [Unknown]
  - Injection site pruritus [Unknown]
  - Volume blood increased [Unknown]
  - Injection site swelling [Unknown]
